FAERS Safety Report 6038732-4 (Version None)
Quarter: 2009Q1

REPORT INFORMATION
  Report Type: 
  Country: None (occurrence: None)
  Receive Date: 20090113
  Receipt Date: 20081209
  Transmission Date: 20090719
  Serious: No
  Sender: FDA-Public Use
  Company Number: 2008BM000247

PATIENT
  Age: 23 Year
  Sex: Female
  Weight: 83.9154 kg

DRUGS (9)
  1. KUVAN [Suspect]
     Indication: PHENYLKETONURIA
     Dosage: 300 MG;PO, 300 MG;TID;PO, 100 MG;QD;PO, 25 MG;QD;PO, 25 MG;QOD;PO, 12.5 MG;QD;PO
     Route: 048
     Dates: start: 20080101, end: 20080101
  2. KUVAN [Suspect]
     Indication: PHENYLKETONURIA
     Dosage: 300 MG;PO, 300 MG;TID;PO, 100 MG;QD;PO, 25 MG;QD;PO, 25 MG;QOD;PO, 12.5 MG;QD;PO
     Route: 048
     Dates: start: 20080411, end: 20080101
  3. KUVAN [Suspect]
     Indication: PHENYLKETONURIA
     Dosage: 300 MG;PO, 300 MG;TID;PO, 100 MG;QD;PO, 25 MG;QD;PO, 25 MG;QOD;PO, 12.5 MG;QD;PO
     Route: 048
     Dates: start: 20080721, end: 20080101
  4. KUVAN [Suspect]
     Indication: PHENYLKETONURIA
     Dosage: 300 MG;PO, 300 MG;TID;PO, 100 MG;QD;PO, 25 MG;QD;PO, 25 MG;QOD;PO, 12.5 MG;QD;PO
     Route: 048
     Dates: start: 20080101, end: 20080530
  5. KUVAN [Suspect]
     Indication: PHENYLKETONURIA
     Dosage: 300 MG;PO, 300 MG;TID;PO, 100 MG;QD;PO, 25 MG;QD;PO, 25 MG;QOD;PO, 12.5 MG;QD;PO
     Route: 048
     Dates: start: 20080622, end: 20080701
  6. KUVAN [Suspect]
     Indication: PHENYLKETONURIA
     Dosage: 300 MG;PO, 300 MG;TID;PO, 100 MG;QD;PO, 25 MG;QD;PO, 25 MG;QOD;PO, 12.5 MG;QD;PO
     Route: 048
     Dates: start: 20080930
  7. LEVODOPA [Concomitant]
  8. DYAZIDE [Concomitant]
  9. MEDROXYPROGESTERONE [Concomitant]

REACTIONS (11)
  - BODY TEMPERATURE INCREASED [None]
  - DYSKINESIA [None]
  - FACIAL PAIN [None]
  - HEART RATE INCREASED [None]
  - HYPERACUSIS [None]
  - HYPERAESTHESIA [None]
  - HYPERMETABOLISM [None]
  - MUSCLE TWITCHING [None]
  - NERVOUS SYSTEM DISORDER [None]
  - PSYCHOMOTOR HYPERACTIVITY [None]
  - RESPIRATORY RATE INCREASED [None]
